FAERS Safety Report 6335845-4 (Version None)
Quarter: 2009Q3

REPORT INFORMATION
  Report Type: 
  Country: None (occurrence: None)
  Receive Date: 20090828
  Receipt Date: 20090821
  Transmission Date: 20100115
  Serious: Yes (Death, Other)
  Sender: FDA-Public Use
  Company Number: 2009SP021606

PATIENT
  Age: 76 Year
  Sex: Female

DRUGS (1)
  1. CELESTAMINE (BETAMETHASONE/DEXCHORPHENIRAMINE MALEATE) [Suspect]
     Indication: DRUG USE FOR UNKNOWN INDICATION
     Dosage: 0.5 MG;

REACTIONS (7)
  - BIPOLAR I DISORDER [None]
  - CEREBROVASCULAR ACCIDENT [None]
  - IMMUNODEFICIENCY [None]
  - LEUKAEMIA [None]
  - OEDEMA [None]
  - PSYCHOMOTOR HYPERACTIVITY [None]
  - SKIN ATROPHY [None]
